FAERS Safety Report 7225340-2 (Version None)
Quarter: 2011Q1

REPORT INFORMATION
  Report Type: 
  Country: None (occurrence: None)
  Receive Date: 20110113
  Receipt Date: 20110108
  Transmission Date: 20110831
  Serious: Yes (Hospitalization, Other)
  Sender: FDA-Public Use
  Company Number: US-ABBOTT-10P-163-0692015-00

PATIENT
  Sex: Female
  Weight: 66.284 kg

DRUGS (4)
  1. VITAMIN B-12 [Concomitant]
     Indication: VITAMIN SUPPLEMENTATION
     Dates: start: 20110103
  2. BENADRYL [Concomitant]
     Indication: PRURITUS
     Route: 048
  3. HUMIRA [Suspect]
     Indication: CROHN'S DISEASE
     Route: 058
     Dates: start: 20101117, end: 20101231
  4. ALBUTEROL [Concomitant]
     Indication: ASTHMA
     Route: 055

REACTIONS (12)
  - PNEUMONIA [None]
  - BLOOD POTASSIUM DECREASED [None]
  - DIZZINESS [None]
  - VISUAL IMPAIRMENT [None]
  - FEELING HOT [None]
  - INJECTION SITE REACTION [None]
  - DYSPNOEA [None]
  - INJECTION SITE PRURITUS [None]
  - INAPPROPRIATE SCHEDULE OF DRUG ADMINISTRATION [None]
  - PRURITUS [None]
  - SWELLING FACE [None]
  - FEELING COLD [None]
